FAERS Safety Report 6769267-9 (Version None)
Quarter: 2010Q2

REPORT INFORMATION
  Report Type: 
  Country: None (occurrence: None)
  Receive Date: 20100615
  Receipt Date: 20100604
  Transmission Date: 20101027
  Serious: Yes (Other)
  Sender: FDA-Public Use
  Company Number: US-JNJFOC-20100603148

PATIENT
  Sex: Male
  Weight: 67.13 kg

DRUGS (8)
  1. MOTRIN IB [Suspect]
     Route: 048
  2. MOTRIN IB [Suspect]
     Indication: BACK PAIN
     Route: 048
  3. ASPIRIN [Interacting]
     Indication: CORONARY ARTERY DISEASE
  4. SERTRALINE HCL [Suspect]
     Indication: ANXIETY
     Route: 048
  5. ACTOS [Concomitant]
     Indication: DIABETES MELLITUS
     Route: 048
  6. LISINOPRIL [Concomitant]
     Indication: PROPHYLAXIS
     Route: 048
  7. METFORMIN HCL [Concomitant]
     Indication: DIABETES MELLITUS
     Route: 048
  8. LIPITOR [Concomitant]
     Indication: BLOOD CHOLESTEROL INCREASED
     Route: 048

REACTIONS (6)
  - DRUG INTERACTION [None]
  - KIDNEY ENLARGEMENT [None]
  - PANCREATITIS [None]
  - RENAL HAEMORRHAGE [None]
  - URETERIC DILATATION [None]
  - WEIGHT DECREASED [None]
